FAERS Safety Report 13404159 (Version 3)
Quarter: 2017Q3

REPORT INFORMATION
  Report Type: Spontaneous
  Country: US (occurrence: US)
  Receive Date: 20170405
  Receipt Date: 20170727
  Transmission Date: 20171127
  Serious: No
  Sender: FDA-Public Use
  Company Number: US-VIFOR (INTERNATIONAL) INC.-VIT-2017-03081

PATIENT
  Age: 74 Year
  Sex: Female
  Weight: 84.1 kg

DRUGS (1)
  1. MIRCERA [Suspect]
     Active Substance: METHOXY POLYETHYLENE GLYCOL-EPOETIN BETA
     Indication: HAEMOGLOBIN DECREASED
     Route: 058
     Dates: start: 20160617

REACTIONS (7)
  - Pruritus [Recovered/Resolved]
  - Nausea [Unknown]
  - Drug hypersensitivity [Unknown]
  - Rash [Unknown]
  - Rash generalised [Recovering/Resolving]
  - Erythema [Recovering/Resolving]
  - Fatigue [Unknown]

NARRATIVE: CASE EVENT DATE: 201606
